FAERS Safety Report 15671144 (Version 2)
Quarter: 2018Q4

REPORT INFORMATION
  Report Type: Report from Study
  Country: CO (occurrence: CO)
  Receive Date: 20181129
  Receipt Date: 20181211
  Transmission Date: 20190205
  Serious: Yes (Hospitalization)
  Sender: FDA-Public Use
  Company Number: CO-SAKK-2018SA321232AA

PATIENT
  Age: 54 Year
  Sex: Female

DRUGS (11)
  1. INSULIN GLULISINE [Suspect]
     Active Substance: INSULIN GLULISINE
     Indication: TYPE 2 DIABETES MELLITUS
     Dosage: 18 IU, TID
     Route: 058
     Dates: start: 201807
  2. RIVAROXABAN [Concomitant]
     Active Substance: RIVAROXABAN
  3. LANTUS [Suspect]
     Active Substance: INSULIN GLARGINE
     Indication: TYPE 2 DIABETES MELLITUS
     Dosage: 35 IU, BID
     Route: 058
     Dates: start: 2016
  4. FUROSEMIDE. [Concomitant]
     Active Substance: FUROSEMIDE
  5. AMLODIPINE [Concomitant]
     Active Substance: AMLODIPINE BESYLATE
  6. ESOMEPRAZOLE. [Concomitant]
     Active Substance: ESOMEPRAZOLE MAGNESIUM
  7. AMIODARONE [Concomitant]
     Active Substance: AMIODARONE
  8. LOSARTAN. [Concomitant]
     Active Substance: LOSARTAN
  9. CARVEDILOL. [Concomitant]
     Active Substance: CARVEDILOL
  10. DAPTOMYCIN. [Concomitant]
     Active Substance: DAPTOMYCIN
  11. METHIMAZOLE. [Concomitant]
     Active Substance: METHIMAZOLE

REACTIONS (8)
  - Chills [Recovered/Resolved]
  - Sense of oppression [Recovered/Resolved]
  - Sepsis [Recovered/Resolved]
  - Asthenia [Recovered/Resolved]
  - Product use issue [Unknown]
  - Pyrexia [Recovered/Resolved]
  - Headache [Recovering/Resolving]
  - Angina unstable [Recovered/Resolved]

NARRATIVE: CASE EVENT DATE: 20181010
